FAERS Safety Report 15317003 (Version 1)
Quarter: 2018Q3

REPORT INFORMATION
  Report Type: Spontaneous
  Country: CA (occurrence: CA)
  Receive Date: 20180824
  Receipt Date: 20180824
  Transmission Date: 20181010
  Serious: Yes (Disabling)
  Sender: FDA-Public Use
  Company Number: CA-009507513-1808CAN007669

PATIENT
  Sex: Female

DRUGS (1)
  1. DIFICID [Suspect]
     Active Substance: FIDAXOMICIN

REACTIONS (6)
  - Fatigue [Unknown]
  - Malaise [Unknown]
  - Discomfort [Unknown]
  - Musculoskeletal discomfort [Unknown]
  - Head discomfort [Unknown]
  - Impaired work ability [Unknown]

NARRATIVE: CASE EVENT DATE: 20180803
